FAERS Safety Report 7879057-1 (Version None)
Quarter: 2011Q4

REPORT INFORMATION
  Report Type: 
  Country: None (occurrence: None)
  Receive Date: 20111101
  Receipt Date: 20111026
  Transmission Date: 20120403
  Serious: Yes (Hospitalization, Other)
  Sender: FDA-Public Use
  Company Number: PHEH2005US10974

PATIENT
  Sex: Male
  Weight: 59 kg

DRUGS (39)
  1. ZOMETA [Suspect]
     Indication: MULTIPLE MYELOMA
     Dosage: 4 MG, QMO
     Route: 042
     Dates: end: 20050519
  2. AMITRIPTYLINE HCL [Concomitant]
  3. EPOGEN [Concomitant]
  4. NITROGLYCERIN [Concomitant]
  5. HEMATOPOETIC PROGENITOR CELLS HUMAN [Concomitant]
     Dosage: AUTOLOGOUS PSCT
     Dates: start: 20040801
  6. METHADONE HCL [Concomitant]
  7. MEGACE [Concomitant]
  8. OXYCONTIN [Concomitant]
  9. SENOKOT [Concomitant]
     Dosage: UNK, PRN
  10. LIDOCAINE HCL [Concomitant]
  11. MS CONTIN [Concomitant]
  12. TOPROL-XL [Concomitant]
  13. TYLENOL-500 [Concomitant]
  14. SEPTOCAINE [Suspect]
  15. DEXAMETHASONE [Concomitant]
     Dates: start: 20030101
  16. THALIDOMIDE [Concomitant]
     Indication: MULTIPLE MYELOMA
     Dosage: 100 MG,
     Route: 048
     Dates: start: 20040217, end: 20040330
  17. MORPHINE [Concomitant]
  18. PREDNISONE [Concomitant]
  19. TRIMOX [Concomitant]
     Dosage: 2 DF, UNK
  20. AREDIA [Suspect]
     Indication: MULTIPLE MYELOMA
     Dosage: 60 MG, QMO
     Route: 042
  21. VINCRISTINE [Concomitant]
     Indication: MULTIPLE MYELOMA
     Dates: start: 20030101, end: 20040101
  22. ZOFRAN [Concomitant]
  23. PROTONIX [Concomitant]
  24. ATIVAN [Concomitant]
  25. MELPHALAN HYDROCHLORIDE [Concomitant]
  26. LOPRESSOR [Concomitant]
  27. PAXIL [Concomitant]
  28. REGLAN [Concomitant]
     Dosage: 5 MG, UNK
  29. COUMADIN [Concomitant]
  30. PLAVIX [Concomitant]
  31. ADRIAMYCIN PFS [Concomitant]
     Indication: MULTIPLE MYELOMA
     Dates: start: 20030101, end: 20040101
  32. REMERON [Concomitant]
  33. COMPAZINE [Concomitant]
     Dosage: 10 MG, PRN
  34. VASOTEC [Concomitant]
  35. COLACE [Concomitant]
  36. VELCADE [Concomitant]
     Indication: MULTIPLE MYELOMA
     Dosage: 1.3 MG/M2
     Route: 042
     Dates: start: 20040330, end: 20040610
  37. FOLIC ACID [Concomitant]
  38. ASPIRIN [Concomitant]
  39. CITANEST [Concomitant]

REACTIONS (88)
  - DYSPNOEA [None]
  - BACK PAIN [None]
  - EAR INFECTION [None]
  - FLUID OVERLOAD [None]
  - OEDEMA [None]
  - MENTAL STATUS CHANGES [None]
  - SUPERIOR VENA CAVA SYNDROME [None]
  - PANCYTOPENIA [None]
  - VOMITING [None]
  - WEIGHT DECREASED [None]
  - SEDATION [None]
  - RASH MACULAR [None]
  - FEBRILE NEUTROPENIA [None]
  - SEXUAL DYSFUNCTION [None]
  - INTERVERTEBRAL DISC DEGENERATION [None]
  - KYPHOSIS [None]
  - PLEURAL EFFUSION [None]
  - GOUTY ARTHRITIS [None]
  - ENDOCARDITIS [None]
  - THROMBOCYTOPENIA [None]
  - HYPOXIA [None]
  - FATIGUE [None]
  - ASTHENIA [None]
  - NAUSEA [None]
  - ATELECTASIS [None]
  - MUCOSAL INFLAMMATION [None]
  - ARTERIOVENOUS FISTULA OCCLUSION [None]
  - CONVULSION [None]
  - OSTEOPOROSIS [None]
  - STAPHYLOCOCCAL BACTERAEMIA [None]
  - CHILLS [None]
  - HYPERKALAEMIA [None]
  - COMPRESSION FRACTURE [None]
  - PROGRESSIVE SUPRANUCLEAR PALSY [None]
  - GASTROOESOPHAGEAL REFLUX DISEASE [None]
  - MULTIPLE MYELOMA [None]
  - PNEUMONIA [None]
  - HEPATITIS C [None]
  - HYPERTHYROIDISM [None]
  - VASCULAR PSEUDOANEURYSM [None]
  - OSTEONECROSIS OF JAW [None]
  - AEROMONA INFECTION [None]
  - URINARY TRACT INFECTION [None]
  - CONSTIPATION [None]
  - DECREASED APPETITE [None]
  - BONE LESION [None]
  - CATARACT [None]
  - CARDIAC FAILURE CONGESTIVE [None]
  - GYNAECOMASTIA [None]
  - ARTERIOVENOUS FISTULA THROMBOSIS [None]
  - CLOSTRIDIUM DIFFICILE COLITIS [None]
  - OSTEOPENIA [None]
  - DIARRHOEA [None]
  - CHEST PAIN [None]
  - HYPOPHOSPHATAEMIA [None]
  - DYSPNOEA PAROXYSMAL NOCTURNAL [None]
  - INFECTIOUS PERITONITIS [None]
  - ERECTILE DYSFUNCTION [None]
  - JUGULAR VEIN THROMBOSIS [None]
  - TOOTHACHE [None]
  - MITRAL VALVE DISEASE [None]
  - SEPSIS [None]
  - DEVICE RELATED SEPSIS [None]
  - CELLULITIS [None]
  - NEPHROPATHY [None]
  - VIRAL INFECTION [None]
  - TACHYCARDIA [None]
  - BLOOD PRESSURE INCREASED [None]
  - NEUROPATHY PERIPHERAL [None]
  - DIZZINESS [None]
  - AZOTAEMIA [None]
  - VERTEBRAL FORAMINAL STENOSIS [None]
  - IMMUNOSUPPRESSION [None]
  - HYPERTENSION [None]
  - CHOLECYSTITIS [None]
  - GASTROINTESTINAL HAEMORRHAGE [None]
  - BONE DISORDER [None]
  - PYREXIA [None]
  - DEVICE RELATED INFECTION [None]
  - WOUND DECOMPOSITION [None]
  - ANAEMIA [None]
  - RENAL FAILURE CHRONIC [None]
  - IMPAIRED GASTRIC EMPTYING [None]
  - CONJUNCTIVAL HAEMORRHAGE [None]
  - OSTEOLYSIS [None]
  - DEEP VEIN THROMBOSIS [None]
  - TOOTH DISCOLOURATION [None]
  - DENTAL PLAQUE [None]
